FAERS Safety Report 8600897 (Version 4)
Quarter: 2013Q4

REPORT INFORMATION
  Report Type: Spontaneous
  Country: AU (occurrence: AU)
  Receive Date: 20120524
  Receipt Date: 20131031
  Transmission Date: 20140711
  Serious: Yes (Other)
  Sender: FDA-Public Use
  Company Number: AU-009507513-2012SP025305

PATIENT
  Sex: 0

DRUGS (1)
  1. CELESTONE CHRONODOSE [Suspect]
     Indication: TENDONITIS
     Dosage: 11.4 MG, ONCE
     Route: 065
     Dates: start: 20110915

REACTIONS (2)
  - Injection site necrosis [Unknown]
  - Injection site pain [Unknown]
